FAERS Safety Report 7532875-1 (Version None)
Quarter: 2011Q2

REPORT INFORMATION
  Report Type: 
  Country: None (occurrence: None)
  Receive Date: 20110608
  Receipt Date: 20110601
  Transmission Date: 20111010
  Serious: Yes (Other)
  Sender: FDA-Public Use
  Company Number: US-PFIZER INC-2010053762

PATIENT
  Sex: Female

DRUGS (2)
  1. DETROL LA [Suspect]
     Dosage: 4 MG, UNK
     Dates: start: 20100101
  2. VESICARE [Suspect]
     Dosage: UNK

REACTIONS (3)
  - URINARY TRACT INFECTION [None]
  - DRUG INEFFECTIVE [None]
  - MICTURITION URGENCY [None]
